FAERS Safety Report 5457359-6 (Version None)
Quarter: 2007Q3

REPORT INFORMATION
  Report Type: 
  Country: None (occurrence: None)
  Receive Date: 20070918
  Receipt Date: 20070215
  Transmission Date: 20080115
  Serious: Yes (Hospitalization)
  Sender: FDA-Public Use
  Company Number: US-ASTRAZENECA-2007UW03090

PATIENT
  Sex: Female

DRUGS (2)
  1. SEROQUEL [Suspect]
     Indication: BIPOLAR I DISORDER
     Route: 048
     Dates: start: 20070213, end: 20070213
  2. SEROQUEL [Suspect]
     Route: 048
     Dates: start: 20070117

REACTIONS (7)
  - AFFECTIVE DISORDER [None]
  - BLUNTED AFFECT [None]
  - ILL-DEFINED DISORDER [None]
  - INTENTIONAL OVERDOSE [None]
  - MEDICATION ERROR [None]
  - SOMNOLENCE [None]
  - SUICIDE ATTEMPT [None]
